FAERS Safety Report 10405836 (Version 1)
Quarter: 2014Q3

REPORT INFORMATION
  Report Type: Spontaneous
  Country: PH (occurrence: PH)
  Receive Date: 20140825
  Receipt Date: 20140825
  Transmission Date: 20150326
  Serious: Yes (Hospitalization)
  Sender: FDA-Public Use
  Company Number: PH-EISAI INC-E2090-03466-SPO-PH

PATIENT
  Age: 22 Year
  Sex: Male
  Weight: 67 kg

DRUGS (5)
  1. PHENOBARBITAL. [Concomitant]
     Active Substance: PHENOBARBITAL
     Route: 048
     Dates: start: 2014
  2. LEVETIRACETAM. [Concomitant]
     Active Substance: LEVETIRACETAM
     Indication: CONVULSION
     Route: 048
  3. MIDAZOLAM [Concomitant]
     Active Substance: MIDAZOLAM\MIDAZOLAM HYDROCHLORIDE
     Indication: CONVULSION
     Route: 042
     Dates: start: 20140724, end: 20140725
  4. ZONEGRAN [Suspect]
     Active Substance: ZONISAMIDE
     Indication: CONVULSION
     Route: 048
     Dates: start: 20140725, end: 20140729
  5. PHENOBARBITAL. [Concomitant]
     Active Substance: PHENOBARBITAL
     Indication: CONVULSION
     Route: 048
     Dates: end: 2014

REACTIONS (3)
  - Haematuria [Recovered/Resolved]
  - Hypertension [Recovered/Resolved]
  - Rash [Recovered/Resolved]

NARRATIVE: CASE EVENT DATE: 20140726
